FAERS Safety Report 19358288 (Version 1)
Quarter: 2021Q2

REPORT INFORMATION
  Report Type: Report from Study
  Country: US (occurrence: US)
  Receive Date: 20210602
  Receipt Date: 20210602
  Transmission Date: 20210717
  Serious: Yes (Other)
  Sender: FDA-Public Use
  Company Number: US-AMGEN-USASL2021079089

PATIENT
  Age: 71 Year
  Sex: Female

DRUGS (1)
  1. OTEZLA [Suspect]
     Active Substance: APREMILAST
     Indication: PSORIATIC ARTHROPATHY
     Dosage: 30 MILLIGRAM, BID
     Route: 065
     Dates: end: 2021

REACTIONS (5)
  - Mental impairment [Recovering/Resolving]
  - Groin pain [Unknown]
  - Frequent bowel movements [Unknown]
  - Drug ineffective [Unknown]
  - Pain in extremity [Unknown]
